FAERS Safety Report 22088062 (Version 5)
Quarter: 2023Q2

REPORT INFORMATION
  Report Type: Report from Study
  Country: US (occurrence: US)
  Receive Date: 20230313
  Receipt Date: 20230617
  Transmission Date: 20230722
  Serious: No
  Sender: FDA-Public Use
  Company Number: US-002147023-NVSC2023US055811

PATIENT
  Sex: Male
  Weight: 134.24 kg

DRUGS (4)
  1. TREPROSTINIL [Suspect]
     Active Substance: TREPROSTINIL
     Indication: Pulmonary arterial hypertension
     Dosage: 115 NG/KG/MIN (CONTINUOUS)
     Route: 058
     Dates: start: 20220818
  2. TREPROSTINIL [Suspect]
     Active Substance: TREPROSTINIL
     Dosage: 115 NG/KG/MIN (CONTINUOUS)
     Route: 058
  3. OPSUMIT [Concomitant]
     Active Substance: MACITENTAN
     Indication: Product used for unknown indication
     Dosage: UNK
     Route: 065
  4. ADEMPAS [Concomitant]
     Active Substance: RIOCIGUAT
     Indication: Product used for unknown indication
     Dosage: UNK
     Route: 065

REACTIONS (4)
  - Blood pressure decreased [Unknown]
  - Injection site pain [Unknown]
  - Injection site swelling [Unknown]
  - Infusion site pain [Unknown]
